FAERS Safety Report 13164935 (Version 1)
Quarter: 2017Q1

REPORT INFORMATION
  Report Type: Spontaneous
  Country: CA (occurrence: CA)
  Receive Date: 20170130
  Receipt Date: 20170130
  Transmission Date: 20170428
  Serious: Yes (Hospitalization, Other)
  Sender: FDA-Public Use
  Company Number: CA-PFIZER INC-2016570010

PATIENT
  Age: 20 Year
  Sex: Female
  Weight: 46 kg

DRUGS (5)
  1. METHOTREXATE SODIUM. [Suspect]
     Active Substance: METHOTREXATE SODIUM
     Dosage: 12.5 MG, WEEKLY
     Route: 048
     Dates: start: 201605
  2. FOLIC ACID. [Concomitant]
     Active Substance: FOLIC ACID
     Dosage: 1 MG, CYCLIC (6 DAYS EVERY WEEK)/ON THE DAYS THAT SHE DOES NOT TAKE METHOTREXATE
     Route: 048
  3. METHOTREXATE SODIUM. [Suspect]
     Active Substance: METHOTREXATE SODIUM
     Dosage: 15 MG, WEEKLY
     Route: 058
     Dates: start: 2013, end: 201605
  4. PREDNISONE. [Concomitant]
     Active Substance: PREDNISONE
     Dosage: 30MG - TAPER OFF 5 MG WEEKLY
  5. INFLECTRA [Suspect]
     Active Substance: INFLIXIMAB-DYYB
     Indication: CROHN^S DISEASE
     Dosage: 300 MG, CYCLIC (EVERY 0, 2, 6 WEEKS, THEN EVERY 8 WEEKS FOR 6 MONTHS)
     Route: 042
     Dates: start: 20160902

REACTIONS (15)
  - Nausea [Unknown]
  - Malaise [Unknown]
  - Drug hypersensitivity [Unknown]
  - Weight fluctuation [Unknown]
  - Drug ineffective [Unknown]
  - Abdominal pain lower [Unknown]
  - Microcytosis [Unknown]
  - Asthenia [Unknown]
  - Drug intolerance [Unknown]
  - Nasopharyngitis [Recovered/Resolved]
  - Crohn^s disease [Recovered/Resolved]
  - Hypochromasia [Unknown]
  - Abdominal pain upper [Unknown]
  - Abdominal distension [Unknown]
  - Iron deficiency [Unknown]

NARRATIVE: CASE EVENT DATE: 201610
